FAERS Safety Report 25062175 (Version 1)
Quarter: 2025Q1

REPORT INFORMATION
  Report Type: Report from Study
  Country: CA (occurrence: CA)
  Receive Date: 20250311
  Receipt Date: 20250311
  Transmission Date: 20250408
  Serious: Yes (Other)
  Sender: TAKEDA
  Company Number: CA-TAKEDA-2023TUS123151

PATIENT
  Sex: Female

DRUGS (2)
  1. VEDOLIZUMAB [Suspect]
     Active Substance: VEDOLIZUMAB
     Indication: Crohn^s disease
  2. BUDESONIDE [Concomitant]
     Active Substance: BUDESONIDE

REACTIONS (7)
  - Internal haemorrhage [Unknown]
  - Malaise [Unknown]
  - Diarrhoea [Unknown]
  - Frequent bowel movements [Unknown]
  - Abdominal mass [Unknown]
  - Abdominal pain [Unknown]
  - Anal fissure [Unknown]
